FAERS Safety Report 10052257 (Version 2)
Quarter: 2014Q2

REPORT INFORMATION
  Report Type: Spontaneous
  Country: JP (occurrence: JP)
  Receive Date: 20140402
  Receipt Date: 20140414
  Transmission Date: 20141212
  Serious: Yes (Other)
  Sender: FDA-Public Use
  Company Number: JP-JNJFOC-20140314881

PATIENT
  Age: 58 Year
  Sex: Male

DRUGS (9)
  1. DUROTEP MT [Suspect]
     Indication: PAIN
     Dosage: AT 18:00 HOURS
     Route: 062
     Dates: start: 20140318, end: 20140320
  2. DUROTEP MT [Suspect]
     Indication: PAIN
     Route: 062
     Dates: start: 20140312, end: 20140317
  3. DUROTEP MT [Suspect]
     Indication: PAIN
     Route: 062
     Dates: start: 20140309, end: 20140311
  4. LYRICA [Concomitant]
     Indication: PAIN
     Route: 048
     Dates: start: 20140314
  5. PONTAL [Concomitant]
     Indication: PRODUCT USED FOR UNKNOWN INDICATION
     Route: 048
  6. TAKEPRON [Concomitant]
     Indication: PRODUCT USED FOR UNKNOWN INDICATION
     Route: 065
  7. ALFAROL [Concomitant]
     Indication: PRODUCT USED FOR UNKNOWN INDICATION
     Route: 048
  8. CALTAN [Concomitant]
     Indication: PRODUCT USED FOR UNKNOWN INDICATION
     Route: 048
  9. PLAVIX [Concomitant]
     Indication: PRODUCT USED FOR UNKNOWN INDICATION
     Route: 048

REACTIONS (3)
  - Delirium [Recovered/Resolved]
  - Pyrexia [Recovering/Resolving]
  - Infection [Unknown]
